FAERS Safety Report 23645891 (Version 1)
Quarter: 2024Q1

REPORT INFORMATION
  Report Type: Spontaneous
  Country: ES (occurrence: ES)
  Receive Date: 20240319
  Receipt Date: 20240319
  Transmission Date: 20240409
  Serious: Yes (Life-Threatening)
  Sender: FDA-Public Use
  Company Number: None

PATIENT
  Age: 74 Year
  Sex: Female

DRUGS (13)
  1. ENALAPRIL MALEATE [Suspect]
     Active Substance: ENALAPRIL MALEATE
     Indication: Hypertension
     Dosage: 2.5 MG DECE/ 10 TABLETS
     Route: 048
     Dates: start: 20240209
  2. EBASTINA CINFA [Concomitant]
     Indication: Hypersensitivity
     Dosage: 10.0 MG DE/ EFG FILM-COATED TABLETS, 20 TABLETS
     Route: 048
     Dates: start: 20201002
  3. OMEPRAZOLE [Concomitant]
     Active Substance: OMEPRAZOLE
     Indication: Gastrooesophageal reflux disease
     Dosage: 20.0 MG A-DE/ HARD GASTRORESISTANT CAPSULES EFG, 56 CAPSULES
     Route: 048
     Dates: start: 20230714
  4. ALPRAZOLAM CINFA [Concomitant]
     Indication: Anxiety
     Dosage: EFG TABLETS, 30 TABLETS
     Route: 048
     Dates: start: 20160827
  5. ZALDIAR [Concomitant]
     Active Substance: ACETAMINOPHEN\TRAMADOL HYDROCHLORIDE
     Indication: Sciatica
     Dosage: 1.0 COMP C/12 H??37.5 MG/325 MG, 60 TABLETS
     Route: 048
     Dates: start: 20240124
  6. ATROALDO [Concomitant]
     Indication: Obstructive airways disorder
     Dosage: 20 MICROGRAMS/PULSATION SOLUTION FOR INHALATION IN PRESSURE CONTAINER, 1 INHALER OF 200 DOSES
     Route: 055
     Dates: start: 20150604
  7. BECLOMETHASONE DIPROPIONATE\FORMOTEROL FUMARATE\GLYCOPYRROLATE [Concomitant]
     Active Substance: BECLOMETHASONE DIPROPIONATE\FORMOTEROL FUMARATE\GLYCOPYRROLATE
     Indication: Bronchitis
     Dosage: 2.0 PUFF C/12 H??87 MICROGRAMS/5 MICROGRAMS/9 MICROGRAMS SOLUTION FOR INHALATION IN PRESSURE CONT...
     Route: 055
     Dates: start: 20221005
  8. ETORICOXIB [Concomitant]
     Active Substance: ETORICOXIB
     Indication: Sciatica
     Dosage: 90.0 MG A-DE/ 28 TABLETS
     Route: 048
     Dates: start: 20240125
  9. ASPIRIN [Concomitant]
     Active Substance: ASPIRIN
     Indication: Transient ischaemic attack
     Dosage: 100.0 MG DE/ EFG GASTRORE-RESISTANT TABLETS, 30 TABLETS (PVC-ALUMINUM)
     Route: 048
     Dates: start: 20240210
  10. VENTOLIN [Concomitant]
     Active Substance: ALBUTEROL SULFATE
     Indication: Obstructive airways disorder
     Dosage: INHALATION SUSPENSION FOR INHALATION IN PRESSURE CONTAINER, 1 INHALER OF 200 DOSES
     Route: 055
     Dates: start: 20210309
  11. CALCIFEDIOL [Concomitant]
     Active Substance: CALCIFEDIOL
     Indication: Vitamin D decreased
     Dosage: 10 CAPSULES (PVC/PVDC-ALUMINUM BLISTER)
     Route: 048
     Dates: start: 20230714
  12. ATORVASTATIN CALCIUM [Concomitant]
     Active Substance: ATORVASTATIN CALCIUM
     Indication: Hyperlipidaemia
     Dosage: 40.0 MG CE/ EFG FILM-COATED TABLETS, 28 TABLETS
     Route: 048
     Dates: start: 20240209
  13. CYCLOBENZAPRINE HYDROCHLORIDE [Concomitant]
     Active Substance: CYCLOBENZAPRINE HYDROCHLORIDE
     Indication: Sciatica
     Dosage: 10.0 MG DECE? 30 CAPSULES
     Route: 048
     Dates: start: 20240124, end: 20240207

REACTIONS (1)
  - Angioedema [Recovered/Resolved]

NARRATIVE: CASE EVENT DATE: 20240210
